FAERS Safety Report 23613726 (Version 2)
Quarter: 2024Q1

REPORT INFORMATION
  Report Type: Spontaneous
  Country: DE (occurrence: DE)
  Receive Date: 20240309
  Receipt Date: 20240329
  Transmission Date: 20240409
  Serious: Yes (Hospitalization)
  Sender: FDA-Public Use
  Company Number: DE-BoehringerIngelheim-2024-BI-013441

PATIENT
  Age: 80 Year
  Sex: Male
  Weight: 86 kg

DRUGS (11)
  1. PRADAXA [Suspect]
     Active Substance: DABIGATRAN ETEXILATE MESYLATE
     Indication: Arrhythmia
     Dosage: 110MG/ 1-0-1 PER DAY
     Route: 048
     Dates: start: 2004, end: 20240229
  2. PRADAXA [Suspect]
     Active Substance: DABIGATRAN ETEXILATE MESYLATE
  3. TAMSULOSIN [Concomitant]
     Active Substance: TAMSULOSIN
     Indication: Product used for unknown indication
     Dosage: 0,4MG/ 0-0-1 PER DAY
     Route: 048
  4. Cefuroim [Concomitant]
     Indication: Product used for unknown indication
     Dosage: 500MG/ 1-0-0 PER DAY
     Route: 048
  5. BISOPROLOL [Concomitant]
     Active Substance: BISOPROLOL\BISOPROLOL FUMARATE
     Indication: Product used for unknown indication
     Dosage: 2,5MG/ 1-0-0 PER DAY
     Route: 048
  6. ATORVASTATIN [Concomitant]
     Active Substance: ATORVASTATIN
     Indication: Product used for unknown indication
     Dosage: 40MG/ 0-0-1 PER DAY
     Route: 048
  7. ALLOPURINOL [Concomitant]
     Active Substance: ALLOPURINOL
     Indication: Product used for unknown indication
     Dosage: 300MG/ 0-0-1/2
     Route: 048
  8. PANTOPRAZOLE SODIUM [Concomitant]
     Active Substance: PANTOPRAZOLE SODIUM
     Indication: Product used for unknown indication
     Dosage: 40MG/ 0-1-0 PER DAY
     Route: 048
  9. LEVOTHYROXINE SODIUM [Concomitant]
     Active Substance: LEVOTHYROXINE SODIUM
     Indication: Product used for unknown indication
     Dosage: 75?G/ 1-0-0 PER DAY
     Route: 048
  10. VALSARTAN [Concomitant]
     Active Substance: VALSARTAN
     Indication: Product used for unknown indication
     Dosage: 80MG/ 0-1-0 PER DAY
     Route: 048
  11. Magnesium K forte [Concomitant]
     Indication: Product used for unknown indication
     Dosage: 2-0-0
     Route: 048

REACTIONS (7)
  - Bladder neoplasm [Recovered/Resolved]
  - Bladder neoplasm [Recovered/Resolved]
  - Bladder neoplasm [Recovered/Resolved]
  - Bladder neoplasm [Not Recovered/Not Resolved]
  - Tooth extraction [Recovered/Resolved]
  - Blood urine present [Not Recovered/Not Resolved]
  - Intentional product use issue [Unknown]

NARRATIVE: CASE EVENT DATE: 20140101
